FAERS Safety Report 8613283 (Version 3)
Quarter: 2012Q4

REPORT INFORMATION
  Report Type: 
  Country: US (occurrence: US)
  Receive Date: 20120613
  Receipt Date: 20121112
  Transmission Date: 20130627
  Serious: Yes (Hospitalization, Other)
  Sender: FDA-Public Use
  Company Number: US-ACTELION-A-NJ2012-65135

PATIENT
  Age: 69 Year
  Sex: Female

DRUGS (5)
  1. VENTAVIS [Suspect]
     Indication: PULMONARY ARTERIAL HYPERTENSION
     Dosage: UNK
     Route: 055
     Dates: start: 20120306
  2. VENTAVIS [Suspect]
     Dosage: UNK
     Route: 055
     Dates: start: 2012
  3. TRACLEER [Concomitant]
     Indication: PULMONARY ARTERIAL HYPERTENSION
     Dosage: UNK
     Route: 048
     Dates: start: 20040823
  4. ASPIRIN [Concomitant]
  5. PLAVIX [Concomitant]

REACTIONS (14)
  - Dialysis [Unknown]
  - Shunt thrombosis [Unknown]
  - Diabetic foot [Unknown]
  - Hypotension [Unknown]
  - Throat irritation [Unknown]
  - Hiccups [Unknown]
  - Ear pain [Unknown]
  - Dysgeusia [Unknown]
  - Cough [Unknown]
  - Dizziness [Unknown]
  - Dizziness postural [Unknown]
  - Flushing [Unknown]
  - Fatigue [Unknown]
  - Dyspnoea [Unknown]
